FAERS Safety Report 12067924 (Version 1)
Quarter: 2016Q1

REPORT INFORMATION
  Report Type: Spontaneous
  Country: US (occurrence: US)
  Receive Date: 20160211
  Receipt Date: 20160211
  Transmission Date: 20160526
  Serious: No
  Sender: FDA-Public Use
  Company Number: US-SMITH AND NEPHEW, INC-2015SMT00163

PATIENT
  Age: 64 Year
  Sex: Male
  Weight: 106.58 kg

DRUGS (3)
  1. INSULIN FLEX PEN [Concomitant]
     Dosage: 25 U, 1X/DAY
  2. LOSARTAN POTASSIUM. [Concomitant]
     Active Substance: LOSARTAN POTASSIUM
     Dosage: 50 MG, 1X/DAY
  3. REGRANEX [Suspect]
     Active Substance: BECAPLERMIN
     Indication: WOUND
     Dosage: UNK UNK, 1X/DAY
     Dates: start: 20150630

REACTIONS (1)
  - Application site pruritus [Unknown]

NARRATIVE: CASE EVENT DATE: 20150701
